FAERS Safety Report 6495130-7 (Version None)
Quarter: 2009Q4

REPORT INFORMATION
  Report Type: 
  Country: None (occurrence: None)
  Receive Date: 20091214
  Receipt Date: 20090508
  Transmission Date: 20100525
  Serious: No
  Sender: FDA-Public Use
  Company Number: US-BRISTOL-MYERS SQUIBB COMPANY-14612311

PATIENT
  Age: 33 Year
  Sex: Female

DRUGS (6)
  1. ABILIFY [Suspect]
     Indication: BIPOLAR DISORDER
     Dates: start: 20090421
  2. TENORETIC 100 [Concomitant]
  3. PROVENTIL GENTLEHALER [Concomitant]
     Route: 055
  4. PROZAC [Concomitant]
  5. ADVAIR DISKUS 100/50 [Concomitant]
     Dosage: ADVAIR INHALER
     Route: 055
  6. LOVASTATIN [Concomitant]

REACTIONS (1)
  - GALACTORRHOEA [None]
